FAERS Safety Report 14998640 (Version 3)
Quarter: 2018Q3

REPORT INFORMATION
  Report Type: Report from Study
  Country: CN (occurrence: CN)
  Receive Date: 20180612
  Receipt Date: 20180726
  Transmission Date: 20181010
  Serious: Yes (Other)
  Sender: FDA-Public Use
  Company Number: CN-ROCHE-2134925

PATIENT

DRUGS (2)
  1. CAPECITABINE. [Suspect]
     Active Substance: CAPECITABINE
     Indication: COLON CANCER METASTATIC
     Route: 048
  2. IRINOTECAN [Suspect]
     Active Substance: IRINOTECAN
     Indication: COLON CANCER METASTATIC
     Dosage: 250 ML OF PHYSIOLOGICAL SALINE ADDED TO 150 MG/M2 OF IRINOTECAN
     Route: 041

REACTIONS (8)
  - Alopecia [Unknown]
  - Leukopenia [Unknown]
  - Thrombocytopenia [Unknown]
  - Vomiting [Unknown]
  - Anaemia [Unknown]
  - Hepatic function abnormal [Unknown]
  - Diarrhoea [Recovered/Resolved]
  - Nausea [Unknown]
